FAERS Safety Report 8830586 (Version 3)
Quarter: 2013Q1

REPORT INFORMATION
  Report Type: Spontaneous
  Country: US (occurrence: US)
  Receive Date: 20121009
  Receipt Date: 20130125
  Transmission Date: 20140127
  Serious: Yes (Hospitalization)
  Sender: FDA-Public Use
  Company Number: US-BAYER-2012-104151

PATIENT
  Age: 23 Year
  Sex: Female
  Weight: 70.3 kg

DRUGS (6)
  1. OCELLA [Suspect]
     Indication: PREMENSTRUAL DYSPHORIC DISORDER
     Dosage: UNK
     Dates: start: 2009, end: 2009
  2. OTHER ANALGESICS AND ANTIPYRETICS [Concomitant]
     Indication: MIGRAINE
  3. ALEVE [Concomitant]
  4. LYRICA [Concomitant]
     Indication: UNEVALUABLE EVENT
     Dosage: UNK
  5. CRESTOR [Concomitant]
     Indication: BLOOD CHOLESTEROL INCREASED
     Dosage: UNK
  6. TYLENOL [Concomitant]
     Dosage: UNK UNK, PRN

REACTIONS (9)
  - Cerebrovascular accident [None]
  - Pain [None]
  - Emotional distress [None]
  - Injury [None]
  - Anhedonia [None]
  - Anxiety [None]
  - General physical health deterioration [None]
  - Pain [None]
  - Off label use [None]
